FAERS Safety Report 13307107 (Version 1)
Quarter: 2017Q1

REPORT INFORMATION
  Report Type: Spontaneous
  Country: CN (occurrence: CN)
  Receive Date: 20170308
  Receipt Date: 20170308
  Transmission Date: 20170428
  Serious: Yes (Other)
  Sender: FDA-Public Use
  Company Number: CN-PFIZER INC-2017099635

PATIENT
  Age: 58 Year
  Sex: Female
  Weight: 55 kg

DRUGS (2)
  1. PHARMORUBICIN [Suspect]
     Active Substance: EPIRUBICIN
     Indication: BREAST CANCER
     Dosage: 70 MG, 1X/DAY
     Route: 041
     Dates: start: 20161205, end: 20161205
  2. CYCLOPHOSPHAMIDE ANHYDROUS. [Concomitant]
     Active Substance: CYCLOPHOSPHAMIDE ANHYDROUS
     Indication: BREAST CANCER
     Dosage: 0.8 G, 1X/DAY
     Route: 041
     Dates: start: 20161205, end: 20161205

REACTIONS (1)
  - Hepatic function abnormal [Recovering/Resolving]

NARRATIVE: CASE EVENT DATE: 20161215
